FAERS Safety Report 8357616-X (Version None)
Quarter: 2012Q2

REPORT INFORMATION
  Report Type: 
  Country: None (occurrence: None)
  Receive Date: 20120514
  Receipt Date: 20120503
  Transmission Date: 20120825
  Serious: Yes (Hospitalization, Other)
  Sender: FDA-Public Use
  Company Number: IN-MUTUAL PHARMACEUTICAL COMPANY, INC.-MTCD20120094

PATIENT
  Age: 42 Year
  Sex: Female

DRUGS (5)
  1. CINNARIZINE [Suspect]
     Indication: PRODUCT USED FOR UNKNOWN INDICATION
     Route: 065
  2. METOCLOPRAMIDE [Suspect]
     Indication: PRODUCT USED FOR UNKNOWN INDICATION
     Route: 065
  3. MULTI-VITAMINS [Suspect]
     Indication: PRODUCT USED FOR UNKNOWN INDICATION
     Route: 065
  4. UNKNOWN ANTIHYPERTENSIVE MEDICATIONS [Concomitant]
     Indication: HYPERTENSION
     Route: 065
  5. DIMENHYDRINATE [Suspect]
     Indication: PRODUCT USED FOR UNKNOWN INDICATION
     Route: 065

REACTIONS (4)
  - MALAISE [None]
  - TOXIC EPIDERMAL NECROLYSIS [None]
  - BLOOD UREA INCREASED [None]
  - HERPES VIRUS INFECTION [None]
